FAERS Safety Report 4933577-8 (Version None)
Quarter: 2006Q1

REPORT INFORMATION
  Report Type: 
  Country: None (occurrence: None)
  Receive Date: 20060306
  Receipt Date: 20060222
  Transmission Date: 20060701
  Serious: Yes (Hospitalization, Other)
  Sender: FDA-Public Use
  Company Number: 2006PK00434

PATIENT
  Age: 47 Year
  Sex: Female

DRUGS (3)
  1. NOLVADEX [Suspect]
     Indication: BREAST CANCER
     Route: 048
     Dates: start: 20030107
  2. ZOLADEX [Suspect]
     Indication: BREAST CANCER
     Route: 058
     Dates: start: 20030109
  3. ZOLEDRONATE [Suspect]
     Indication: BREAST CANCER
     Route: 042
     Dates: start: 20030107

REACTIONS (3)
  - OVARIAN FIBROMA [None]
  - UTERINE LEIOMYOMA [None]
  - UTERINE POLYP [None]
